FAERS Safety Report 10370492 (Version 3)
Quarter: 2014Q4

REPORT INFORMATION
  Report Type: Report from Study
  Country: CA (occurrence: CA)
  Receive Date: 20140808
  Receipt Date: 20141211
  Transmission Date: 20150528
  Serious: Yes (Other)
  Sender: FDA-Public Use
  Company Number: CA-ROCHE-1445795

PATIENT
  Sex: Female

DRUGS (7)
  1. ACETAMINOPHEN. [Concomitant]
     Active Substance: ACETAMINOPHEN
     Route: 048
     Dates: start: 20141208
  2. RITUXAN [Suspect]
     Active Substance: RITUXIMAB
     Indication: RHEUMATOID ARTHRITIS
     Route: 042
  3. RITUXAN [Suspect]
     Active Substance: RITUXIMAB
     Dosage: 1ST RPAP DOSE
     Route: 042
     Dates: start: 20130923
  4. METHYLPREDNISOLONE. [Concomitant]
     Active Substance: METHYLPREDNISOLONE
     Route: 042
     Dates: start: 20141208
  5. RITUXAN [Suspect]
     Active Substance: RITUXIMAB
     Dosage: FIRST PIR RECEIVED.
     Route: 042
     Dates: start: 20141208
  6. DIPHENHYDRAMINE [Concomitant]
     Active Substance: DIPHENHYDRAMINE
     Route: 048
     Dates: start: 20141208
  7. RANITIDINE [Concomitant]
     Active Substance: RANITIDINE\RANITIDINE HYDROCHLORIDE

REACTIONS (2)
  - Arthropathy [Unknown]
  - Infusion related reaction [Unknown]
